FAERS Safety Report 9233683 (Version 1)
Quarter: 2013Q2

REPORT INFORMATION
  Report Type: Spontaneous
  Country: US (occurrence: US)
  Receive Date: 20130416
  Receipt Date: 20130416
  Transmission Date: 20140414
  Serious: No
  Sender: FDA-Public Use
  Company Number: US-BANPHARM-20130702

PATIENT
  Age: 48 Year
  Sex: Female
  Weight: 89.36 kg

DRUGS (3)
  1. ALEVE LIQUID GELS 220MG [Suspect]
     Indication: ANALGESIC THERAPY
     Dosage: 1 DF,
     Route: 048
     Dates: start: 20120315
  2. VITAMIN [Concomitant]
  3. CLARINEX [Concomitant]

REACTIONS (1)
  - Drug ineffective [Unknown]
